FAERS Safety Report 6044652-1 (Version None)
Quarter: 2009Q1

REPORT INFORMATION
  Report Type: 
  Country: None (occurrence: None)
  Receive Date: 20090120
  Receipt Date: 20090108
  Transmission Date: 20090719
  Serious: Yes (Death)
  Sender: FDA-Public Use
  Company Number: IE-PFIZER INC-2008046985

PATIENT

DRUGS (11)
  1. CHAMPIX [Suspect]
     Route: 048
     Dates: start: 20071127
  2. ALLOPURINOL [Concomitant]
  3. POTASSIUM CHLORIDE [Concomitant]
  4. ISTIN [Concomitant]
  5. ATENOLOL [Concomitant]
  6. LIPITOR [Concomitant]
  7. ACETYLSALICYLIC ACID SRT [Concomitant]
  8. DOXAZOSIN MESYLATE [Concomitant]
  9. TRAMADOL HCL [Concomitant]
  10. AMOXIL [Concomitant]
  11. NEURONTIN [Concomitant]

REACTIONS (1)
  - CARDIAC DISORDER [None]
